FAERS Safety Report 14161831 (Version 1)
Quarter: 2017Q4

REPORT INFORMATION
  Report Type: Spontaneous
  Country: US (occurrence: None)
  Receive Date: 20171104
  Receipt Date: 20171104
  Transmission Date: 20180321
  Serious: Yes (Hospitalization)
  Sender: FDA-Public Use
  Company Number: None

PATIENT
  Age: 81 Year
  Sex: Female
  Weight: 79.06 kg

DRUGS (1)
  1. MEMANTINE HYDROCHLORIDE. [Suspect]
     Active Substance: MEMANTINE HYDROCHLORIDE
     Dates: end: 20171023

REACTIONS (13)
  - Pulmonary embolism [None]
  - Deep vein thrombosis [None]
  - Fall [None]
  - Head injury [None]
  - Vertigo [None]
  - Arrhythmia [None]
  - Infection [None]
  - Dizziness [None]
  - Syncope [None]
  - Anticoagulation drug level above therapeutic [None]
  - Anticoagulation drug level below therapeutic [None]
  - Balance disorder [None]
  - Electrolyte imbalance [None]

NARRATIVE: CASE EVENT DATE: 20171023
